FAERS Safety Report 7903457-4 (Version None)
Quarter: 2011Q4

REPORT INFORMATION
  Report Type: 
  Country: None (occurrence: None)
  Receive Date: 20111109
  Receipt Date: 20111101
  Transmission Date: 20120403
  Serious: Yes (Hospitalization)
  Sender: FDA-Public Use
  Company Number: US-JNJFOC-20111100573

PATIENT
  Sex: Male
  Weight: 58.97 kg

DRUGS (2)
  1. REMICADE [Suspect]
     Indication: CROHN'S DISEASE
     Route: 042
     Dates: start: 20111001, end: 20111001
  2. PREDNISONE [Concomitant]
     Indication: CROHN'S DISEASE
     Route: 048
     Dates: start: 20110101

REACTIONS (7)
  - CHEST DISCOMFORT [None]
  - PAIN IN EXTREMITY [None]
  - ARRHYTHMIA [None]
  - PNEUMONIA [None]
  - PYREXIA [None]
  - PAIN IN JAW [None]
  - MUSCULOSKELETAL PAIN [None]
